FAERS Safety Report 5335864-0 (Version None)
Quarter: 2007Q2

REPORT INFORMATION
  Report Type: 
  Country: None (occurrence: None)
  Receive Date: 20070301
  Receipt Date: 20061212
  Transmission Date: 20071010
  Serious: No
  Sender: FDA-Public Use
  Company Number: 233220

PATIENT
  Age: 16 Year
  Sex: Male
  Weight: 80.8 kg

DRUGS (2)
  1. NUTROPIN [Suspect]
     Indication: GROWTH HORMONE DEFICIENCY
     Dosage: 2.75 MG, QD
     Dates: start: 19990106
  2. ZYRTEC [Concomitant]

REACTIONS (1)
  - CARPAL TUNNEL SYNDROME [None]
